FAERS Safety Report 13129748 (Version 1)
Quarter: 2017Q1

REPORT INFORMATION
  Report Type: Spontaneous
  Country: US (occurrence: US)
  Receive Date: 20170118
  Receipt Date: 20170118
  Transmission Date: 20170428
  Serious: Yes (Other)
  Sender: FDA-Public Use
  Company Number: None

PATIENT
  Age: 43 Year
  Sex: Male
  Weight: 78.3 kg

DRUGS (3)
  1. WHOLE WHEAT WAFFLES [Concomitant]
  2. GOLD BOND PSORIASIS RELIEF CREAM [Suspect]
     Active Substance: SALICYLIC ACID
  3. OMEGA-3 FISH OIL [Concomitant]
     Active Substance: FISH OIL\OMEGA-3 FATTY ACIDS

REACTIONS (3)
  - Headache [None]
  - Product quality issue [None]
  - Nightmare [None]

NARRATIVE: CASE EVENT DATE: 20170116
